FAERS Safety Report 7602277-8 (Version None)
Quarter: 2011Q3

REPORT INFORMATION
  Report Type: 
  Country: None (occurrence: None)
  Receive Date: 20110711
  Receipt Date: 20110705
  Transmission Date: 20111222
  Serious: No
  Sender: FDA-Public Use
  Company Number: US-ROXANE LABORATORIES, INC.-2011-RO-00949RO

PATIENT
  Age: 31 Year
  Sex: Male

DRUGS (1)
  1. CODEINE SUL TAB [Suspect]

REACTIONS (1)
  - RASH [None]
